FAERS Safety Report 5583972-1 (Version None)
Quarter: 2008Q1

REPORT INFORMATION
  Report Type: 
  Country: None (occurrence: None)
  Receive Date: 20080103
  Receipt Date: 20071227
  Transmission Date: 20080703
  Serious: Yes (Hospitalization)
  Sender: FDA-Public Use
  Company Number: 2007BI022251

PATIENT
  Age: 66 Year
  Sex: Male

DRUGS (1)
  1. AVONEX [Suspect]
     Indication: MULTIPLE SCLEROSIS
     Dosage: 30 UG;QW;IM
     Route: 030
     Dates: start: 19981001

REACTIONS (8)
  - ASTHENIA [None]
  - BENIGN PROSTATIC HYPERPLASIA [None]
  - CARDIAC DISORDER [None]
  - DEPRESSION [None]
  - DROOLING [None]
  - HYPERTENSION [None]
  - PARKINSON'S DISEASE [None]
  - WEIGHT DECREASED [None]
